FAERS Safety Report 7021478-3 (Version None)
Quarter: 2010Q3

REPORT INFORMATION
  Report Type: 
  Country: None (occurrence: None)
  Receive Date: 20100928
  Receipt Date: 20090901
  Transmission Date: 20110219
  Serious: Yes (Hospitalization, Other)
  Sender: FDA-Public Use
  Company Number: 2009SP023460

PATIENT
  Age: 23 Year
  Sex: Female
  Weight: 54.4316 kg

DRUGS (2)
  1. NUVARING [Suspect]
     Indication: CONTRACEPTION
     Dosage: 1 DF
     Dates: start: 20070501, end: 20080501
  2. ASTHMA MEDICATION [Concomitant]

REACTIONS (3)
  - INFECTION [None]
  - PULMONARY EMBOLISM [None]
  - SUICIDE ATTEMPT [None]
